FAERS Safety Report 6373593-5 (Version None)
Quarter: 2009Q3

REPORT INFORMATION
  Report Type: 
  Country: None (occurrence: None)
  Receive Date: 20090924
  Receipt Date: 20090917
  Transmission Date: 20100115
  Serious: Yes (Other)
  Sender: FDA-Public Use
  Company Number: BR-JNJFOC-20090905725

PATIENT
  Age: 40 Day
  Sex: Male

DRUGS (2)
  1. DAKTARIN [Suspect]
     Route: 048
     Dates: start: 20090915, end: 20090916
  2. DAKTARIN [Suspect]
     Indication: APHTHOUS STOMATITIS
     Dosage: 4 APPLICATIONS
     Route: 048
     Dates: start: 20090915, end: 20090916

REACTIONS (5)
  - COUGH [None]
  - DRUG DISPENSING ERROR [None]
  - FOAMING AT MOUTH [None]
  - SOMNOLENCE [None]
  - WRONG DRUG ADMINISTERED [None]
